FAERS Safety Report 5081124-5 (Version None)
Quarter: 2006Q3

REPORT INFORMATION
  Report Type: 
  Country: None (occurrence: None)
  Receive Date: 20060720
  Receipt Date: 20060111
  Transmission Date: 20061208
  Serious: Yes (Hospitalization, Other)
  Sender: FDA-Public Use
  Company Number: 2006006845

PATIENT
  Age: 73 Year
  Sex: Female

DRUGS (4)
  1. CELEBREX [Suspect]
     Indication: ARTHRALGIA
     Dosage: ORAL
     Route: 048
  2. ALL OTHER THERAPEUTIC PRODUCTS (ALL OTHER THERAPEUTIC PRODUCTS) [Concomitant]
  3. ANTIHYPERTENSIVES (ANTIHYPERTENSIVES) [Concomitant]
  4. ZANTAC [Concomitant]

REACTIONS (2)
  - CEREBROVASCULAR ACCIDENT [None]
  - THROMBOSIS [None]
